FAERS Safety Report 17373073 (Version 2)
Quarter: 2020Q3

REPORT INFORMATION
  Report Type: Report from Study
  Country: GB (occurrence: GB)
  Receive Date: 20200205
  Receipt Date: 20200813
  Transmission Date: 20201102
  Serious: Yes (Other)
  Sender: FDA-Public Use
  Company Number: NVSC2020GB025591

PATIENT
  Sex: Male

DRUGS (1)
  1. HYRIMOZ [Suspect]
     Active Substance: ADALIMUMAB-ADAZ
     Indication: ANKYLOSING SPONDYLITIS
     Dosage: 40MG/0.8ML, FORTNIGHTLY
     Route: 058
     Dates: start: 20190418

REACTIONS (2)
  - Crohn^s disease [Unknown]
  - Colitis [Unknown]
